FAERS Safety Report 9500138 (Version 1)
Quarter: 2013Q1

REPORT INFORMATION
  Report Type: Spontaneous
  Country: US (occurrence: None)
  Receive Date: 20130107
  Receipt Date: 20130107
  Transmission Date: 20140127
  Serious: No
  Sender: FDA-Public Use
  Company Number: PHEH2012US021977

PATIENT
  Age: 42 Year
  Sex: Male
  Weight: 117 kg

DRUGS (6)
  1. GILENYA [Suspect]
     Indication: MULTIPLE SCLEROSIS
     Route: 048
     Dates: start: 20120604
  2. VENLAFAXINE (VENLAFAXINE) [Concomitant]
  3. GABAPENTIN (GABAPENTIN) [Concomitant]
  4. CALCIUM (CALCIUM) [Concomitant]
  5. ABILIFY (ARIPIPRAZOLE) [Concomitant]
  6. VITAMIN B (VITAMIN B COMPLEX) [Concomitant]

REACTIONS (3)
  - Vertigo [None]
  - Fatigue [None]
  - Dizziness [None]
